FAERS Safety Report 24529059 (Version 1)
Quarter: 2024Q4

REPORT INFORMATION
  Report Type: Spontaneous
  Country: CN (occurrence: CN)
  Receive Date: 20241021
  Receipt Date: 20241021
  Transmission Date: 20250115
  Serious: Yes (Life-Threatening)
  Sender: ABBVIE
  Company Number: CN-ABBVIE-5970957

PATIENT
  Age: 54 Year
  Sex: Female

DRUGS (2)
  1. VENETOCLAX [Suspect]
     Active Substance: VENETOCLAX
     Indication: Neoplasm prophylaxis
     Dosage: 400 MILLIGRAM
     Route: 048
     Dates: start: 20240920, end: 20240925
  2. IVOSIDENIB [Suspect]
     Active Substance: IVOSIDENIB
     Indication: Neoplasm prophylaxis
     Dosage: 0.5 GRAM
     Route: 048
     Dates: start: 20240920, end: 20240927

REACTIONS (1)
  - Drug-induced liver injury [Recovered/Resolved]

NARRATIVE: CASE EVENT DATE: 20241007
